FAERS Safety Report 10285904 (Version 1)
Quarter: 2014Q3

REPORT INFORMATION
  Report Type: Spontaneous
  Country: US (occurrence: None)
  Receive Date: 20140703
  Receipt Date: 20140703
  Transmission Date: 20150326
  Serious: Yes (Other)
  Sender: FDA-Public Use
  Company Number: None

PATIENT
  Age: 24 Year
  Sex: Female
  Weight: 49.9 kg

DRUGS (1)
  1. CANNABIS [Suspect]
     Active Substance: CANNABIS SATIVA SUBSP. INDICA TOP
     Indication: MIGRAINE
     Dosage: WHOLE BAR AS NEEDED TAKEN BY MOUTH
     Route: 048
     Dates: start: 20140503, end: 20140503

REACTIONS (5)
  - Vomiting [None]
  - Abdominal pain upper [None]
  - Cold sweat [None]
  - Product quality issue [None]
  - Malaise [None]

NARRATIVE: CASE EVENT DATE: 20140502
